FAERS Safety Report 8221104-1 (Version None)
Quarter: 2012Q1

REPORT INFORMATION
  Report Type: 
  Country: None (occurrence: None)
  Receive Date: 20120316
  Receipt Date: 20120306
  Transmission Date: 20120608
  Serious: Yes (Other)
  Sender: FDA-Public Use
  Company Number: NSR_00507_2012

PATIENT
  Age: 51 Year
  Sex: Female
  Weight: 56.246 kg

DRUGS (9)
  1. OMEPRAZOLE [Concomitant]
  2. LAMOTRIGINE [Concomitant]
  3. BENADRYL [Concomitant]
  4. ATIVAN [Concomitant]
  5. LACTULOSE [Concomitant]
  6. AMOXAPINE [Concomitant]
  7. HYDROCODONE BITARTRATE AND IBUPROFEN [Concomitant]
  8. LAMOTRIGINE [Suspect]
     Indication: BIPOLAR DISORDER
     Dosage: (100 MG QD ORAL)
     Route: 048
     Dates: start: 20120201, end: 20120305
  9. PREDNISONE [Concomitant]

REACTIONS (6)
  - PANCREATITIS [None]
  - OESOPHAGEAL ULCER [None]
  - CHEST PAIN [None]
  - RASH [None]
  - OROPHARYNGEAL BLISTERING [None]
  - MOUTH ULCERATION [None]
